FAERS Safety Report 8500333-3 (Version None)
Quarter: 2012Q3

REPORT INFORMATION
  Report Type: 
  Country: None (occurrence: None)
  Receive Date: 20120710
  Receipt Date: 20120702
  Transmission Date: 20120928
  Serious: Yes (Hospitalization)
  Sender: FDA-Public Use
  Company Number: JP-JNJFOC-20120516678

PATIENT
  Sex: Female
  Weight: 36 kg

DRUGS (5)
  1. LEVOMEPROMAZINE MALEATE [Concomitant]
     Route: 048
     Dates: start: 20111112, end: 20111205
  2. GALANTAMINE HYDROBROMIDE [Suspect]
     Indication: DEMENTIA ALZHEIMER'S TYPE
     Route: 048
     Dates: start: 20110727, end: 20110830
  3. LEVOMEPROMAZINE MALEATE [Concomitant]
     Route: 048
     Dates: start: 20111206
  4. LEVOMEPROMAZINE MALEATE [Concomitant]
     Indication: AFFECT LABILITY
     Route: 048
     Dates: start: 20101101, end: 20110804
  5. GALANTAMINE HYDROBROMIDE [Suspect]
     Route: 048
     Dates: start: 20110831, end: 20111112

REACTIONS (2)
  - AFFECT LABILITY [None]
  - HYPERKINESIA [None]
